FAERS Safety Report 4850416-4 (Version None)
Quarter: 2005Q4

REPORT INFORMATION
  Report Type: 
  Country: None (occurrence: None)
  Receive Date: 20051123
  Receipt Date: 20051011
  Transmission Date: 20060501
  Serious: No
  Sender: FDA-Public Use
  Company Number: TPA2005A01247

PATIENT
  Sex: Male

DRUGS (3)
  1. ROZEREM [Suspect]
     Indication: INSOMNIA
     Dosage: 8 MG, QHS, PER ORAL
     Route: 048
     Dates: start: 20051001, end: 20051002
  2. UNKNOWN BLOOD PRESSURE MEDICATION (ANTIHYPERTENSIVES) [Concomitant]
  3. UNKNOWN STATIN (CHOLESTEROL- AND TRIGLYCERIDE REDUCERS) [Concomitant]

REACTIONS (5)
  - ANXIETY [None]
  - HEART RATE INCREASED [None]
  - MYALGIA [None]
  - PANIC ATTACK [None]
  - THINKING ABNORMAL [None]
